FAERS Safety Report 8991907 (Version 2)
Quarter: 2013Q3

REPORT INFORMATION
  Report Type: Report from Study
  Country: FR (occurrence: FR)
  Receive Date: 20121231
  Receipt Date: 20130712
  Transmission Date: 20140515
  Serious: No
  Sender: FDA-Public Use
  Company Number: FR-UCBSA-073965

PATIENT
  Age: 42 Year
  Sex: Female
  Weight: 53 kg

DRUGS (13)
  1. CIMZIA [Suspect]
     Indication: RHEUMATOID ARTHRITIS
     Dosage: TEMPORARILY INTERUPTED
     Route: 058
     Dates: start: 20120423
  2. CIMZIA [Suspect]
     Indication: RHEUMATOID ARTHRITIS
     Route: 058
     Dates: start: 2012, end: 20120415
  3. CIMZIA [Suspect]
     Indication: RHEUMATOID ARTHRITIS
     Route: 058
     Dates: start: 20120316, end: 2012
  4. METOJECT [Suspect]
     Indication: RHEUMATOID ARTHRITIS
     Dates: start: 201103, end: 20121221
  5. IMETH [Suspect]
     Indication: RHEUMATOID ARTHRITIS
     Dosage: 20 MG PER WEEK
     Route: 048
     Dates: start: 20121221
  6. CORTANCYL [Suspect]
     Indication: RHEUMATOID ARTHRITIS
     Dosage: DAILY DOSE: 5 MG
     Route: 048
     Dates: start: 201103, end: 201301
  7. CORTANCYL [Suspect]
     Indication: RHEUMATOID ARTHRITIS
     Dosage: DAILY DOSE: 7.5 MG
     Route: 048
     Dates: start: 201010, end: 201103
  8. METHOTREXATE [Concomitant]
     Indication: RHEUMATOID ARTHRITIS
     Dosage: DOSAGE: 20 MG WEEKLY
     Route: 058
     Dates: start: 201103
  9. METHOTREXATE [Concomitant]
     Indication: RHEUMATOID ARTHRITIS
     Dosage: DOSAGE: 15 MG WEEKLY
     Route: 048
     Dates: start: 201012, end: 201103
  10. METHOTREXATE [Concomitant]
     Indication: RHEUMATOID ARTHRITIS
     Dosage: 10 MG WEEKLY
     Route: 048
     Dates: start: 201010, end: 201012
  11. VOLTARENE [Concomitant]
     Indication: RHEUMATOID ARTHRITIS
     Dosage: DAILY DOSAGE:150 MG
     Route: 048
     Dates: start: 201012
  12. PLAQUENIL [Concomitant]
     Indication: RHEUMATOID ARTHRITIS
     Route: 048
     Dates: start: 201112, end: 20120316
  13. PLAQUENIL [Concomitant]
     Indication: RHEUMATOID ARTHRITIS
     Route: 048
     Dates: start: 201109, end: 201112

REACTIONS (5)
  - Oral herpes [Recovered/Resolved]
  - Herpes virus infection [Recovered/Resolved]
  - Bronchitis [Recovered/Resolved]
  - Rhinitis allergic [Recovered/Resolved]
  - Influenza [Recovered/Resolved]
